FAERS Safety Report 14781935 (Version 1)
Quarter: 2018Q2

REPORT INFORMATION
  Report Type: Spontaneous
  Country: FR (occurrence: FR)
  Receive Date: 20180420
  Receipt Date: 20180420
  Transmission Date: 20180711
  Serious: Yes (Hospitalization)
  Sender: FDA-Public Use
  Company Number: FR-MERCK KGAA-2046111

PATIENT
  Sex: Female

DRUGS (1)
  1. NOVOTHYROX [Suspect]
     Active Substance: LEVOTHYROXINE SODIUM
     Indication: PRODUCT USED FOR UNKNOWN INDICATION
     Dates: start: 201704

REACTIONS (16)
  - Marital problem [None]
  - Aversion [None]
  - Gait disturbance [None]
  - Fatigue [None]
  - Emotional distress [None]
  - Weight increased [None]
  - Muscle spasms [None]
  - Sleep disorder [None]
  - Loss of personal independence in daily activities [None]
  - Anxiety [None]
  - Weight bearing difficulty [None]
  - Mood swings [None]
  - Social avoidant behaviour [None]
  - Personal relationship issue [None]
  - Pain in extremity [None]
  - Depression [None]
